FAERS Safety Report 4394196-8 (Version None)
Quarter: 2004Q3

REPORT INFORMATION
  Report Type: 
  Country: None (occurrence: None)
  Receive Date: 20040707
  Receipt Date: 20040625
  Transmission Date: 20050211
  Serious: Yes (Death, Hospitalization)
  Sender: FDA-Public Use
  Company Number: 163-20785-04050143

PATIENT
  Age: 69 Year
  Sex: Male

DRUGS (2)
  1. THALOMID [Suspect]
     Indication: MULTIPLE MYELOMA
     Dosage: 50 MG, DAILY, ORAL
     Route: 048
     Dates: start: 20031208, end: 20040101
  2. THALOMID [Suspect]
     Indication: MYELOFIBROSIS
     Dosage: 50 MG, DAILY, ORAL
     Route: 048
     Dates: start: 20031208, end: 20040101

REACTIONS (3)
  - COLON CANCER [None]
  - GASTROINTESTINAL NECROSIS [None]
  - SEPSIS [None]
